FAERS Safety Report 5024695-7 (Version None)
Quarter: 2006Q2

REPORT INFORMATION
  Report Type: 
  Country: None (occurrence: None)
  Receive Date: 20060426
  Receipt Date: 20060209
  Transmission Date: 20061013
  Serious: Yes (Other)
  Sender: FDA-Public Use
  Company Number: 2006020763

PATIENT
  Age: 32 Year
  Sex: Male
  Weight: 129.2752 kg

DRUGS (1)
  1. LYRICA [Suspect]
     Indication: PAIN IN EXTREMITY
     Dosage: 150 MG (50 MG, 3 IN 1 D), ORAL
     Route: 048
     Dates: start: 20060101, end: 20060101

REACTIONS (3)
  - CHEST PAIN [None]
  - HUNGER [None]
  - PALPITATIONS [None]
